FAERS Safety Report 5246688-7 (Version None)
Quarter: 2007Q1

REPORT INFORMATION
  Report Type: 
  Country: None (occurrence: None)
  Receive Date: 20070226
  Receipt Date: 20070221
  Transmission Date: 20070707
  Serious: Yes (Other)
  Sender: FDA-Public Use
  Company Number: GBWYE745221FEB07

PATIENT
  Age: 41 Year
  Sex: Female
  Weight: 82 kg

DRUGS (2)
  1. VENLAFAXINE HYDROCHLORIDE [Suspect]
     Indication: DEPRESSION
     Dosage: 300MG, FREQUENCY UNKNOWN
     Route: 048
     Dates: start: 20040301, end: 20061201
  2. ZOPICLONE [Concomitant]
     Indication: SLEEP DISORDER
     Dosage: 7.5MG, FREQUENCY UNKNOWN
     Route: 048
     Dates: start: 20030101, end: 20070101

REACTIONS (3)
  - BLISTER [None]
  - RASH [None]
  - SKIN ULCER [None]
